FAERS Safety Report 11417557 (Version 1)
Quarter: 2015Q3

REPORT INFORMATION
  Report Type: Spontaneous
  Country: US (occurrence: US)
  Receive Date: 20150825
  Receipt Date: 20150825
  Transmission Date: 20151125
  Serious: No
  Sender: FDA-Public Use
  Company Number: US-ACTELION PHARMACEUTICALS US, INC.-A-US2015-123023

PATIENT
  Age: 75 Year
  Sex: Female

DRUGS (10)
  1. VALCHLOR [Suspect]
     Active Substance: MECHLORETHAMINE
     Indication: MYCOSIS FUNGOIDES
     Dosage: UNK, DAILY
     Route: 061
     Dates: start: 20150430
  2. ZINC [Concomitant]
     Active Substance: ZINC\ZINC CHLORIDE
  3. PRAVACHOL [Concomitant]
     Active Substance: PRAVASTATIN SODIUM
  4. CRESTOR [Concomitant]
     Active Substance: ROSUVASTATIN CALCIUM
  5. KLONOPIN [Concomitant]
     Active Substance: CLONAZEPAM
  6. RESTASIS [Concomitant]
     Active Substance: CYCLOSPORINE
  7. ZOLOFT [Concomitant]
     Active Substance: SERTRALINE HYDROCHLORIDE
  8. POTASSIUM CHLORIDE. [Concomitant]
     Active Substance: POTASSIUM CHLORIDE
  9. TARGRETIN [Concomitant]
     Active Substance: BEXAROTENE
  10. CLOBETASOL [Concomitant]
     Active Substance: CLOBETASOL

REACTIONS (3)
  - Scab [Not Recovered/Not Resolved]
  - Pain [Not Recovered/Not Resolved]
  - Purulent discharge [Not Recovered/Not Resolved]
